FAERS Safety Report 4356947-8 (Version None)
Quarter: 2004Q2

REPORT INFORMATION
  Report Type: 
  Country: None (occurrence: None)
  Receive Date: 20040507
  Receipt Date: 20040414
  Transmission Date: 20050107
  Serious: Yes (Other)
  Sender: FDA-Public Use
  Company Number: US_0404102431

PATIENT
  Sex: Female

DRUGS (3)
  1. EVISTA [Suspect]
     Dates: start: 20010101
  2. MIACALCIN [Concomitant]
  3. HORMONE REPLACEMENT THERAPY [Concomitant]

REACTIONS (1)
  - ANKLE FRACTURE [None]
